FAERS Safety Report 23342158 (Version 1)
Quarter: 2023Q4

REPORT INFORMATION
  Report Type: Spontaneous
  Country: US (occurrence: None)
  Receive Date: 20231226
  Receipt Date: 20231226
  Transmission Date: 20240109
  Serious: Yes (Death)
  Sender: FDA-Public Use
  Company Number: None

PATIENT
  Age: 92 Year
  Sex: Male
  Weight: 72 kg

DRUGS (2)
  1. KEYTRUDA [Suspect]
     Active Substance: PEMBROLIZUMAB
     Dates: start: 20230524, end: 20230906
  2. KEYTRUDA [Concomitant]
     Active Substance: PEMBROLIZUMAB
     Dates: start: 20230509, end: 20230906

REACTIONS (6)
  - Bell^s palsy [None]
  - Cognitive disorder [None]
  - Muscular weakness [None]
  - Gait inability [None]
  - Dysphagia [None]
  - Encephalitis [None]

NARRATIVE: CASE EVENT DATE: 20230821
